FAERS Safety Report 21531928 (Version 1)
Quarter: 2022Q4

REPORT INFORMATION
  Report Type: Spontaneous
  Country: US (occurrence: None)
  Receive Date: 20221101
  Receipt Date: 20221101
  Transmission Date: 20230113
  Serious: Yes (Hospitalization, Other)
  Sender: FDA-Public Use
  Company Number: US-Unichem Pharmaceuticals (USA) Inc-UCM202210-001119

PATIENT
  Age: 17 Year
  Sex: Female
  Weight: 61.4 kg

DRUGS (1)
  1. AMLODIPINE [Suspect]
     Active Substance: AMLODIPINE BESYLATE
     Indication: Overdose
     Dosage: 740 MG

REACTIONS (9)
  - Cardiac arrest [Unknown]
  - Vasoplegia syndrome [Unknown]
  - Hypoxia [Unknown]
  - Acute kidney injury [Unknown]
  - Encephalopathy [Unknown]
  - Lactic acidosis [Unknown]
  - Hypotension [Unknown]
  - Suicide attempt [Unknown]
  - Overdose [Unknown]
